FAERS Safety Report 4707734-X (Version None)
Quarter: 2005Q2

REPORT INFORMATION
  Report Type: 
  Country: None (occurrence: None)
  Receive Date: 20050629
  Receipt Date: 20050321
  Transmission Date: 20051028
  Serious: No
  Sender: FDA-Public Use
  Company Number: 05P-163-0294785-00

PATIENT
  Age: 71 Year
  Sex: Female
  Weight: 53.5244 kg

DRUGS (10)
  1. HUMIRA [Suspect]
     Indication: RHEUMATOID ARTHRITIS
     Dosage: 40 MG, 1 IN 2 WK, SUBCUTANEOUS
     Route: 058
     Dates: start: 20030101, end: 20040101
  2. HUMIRA [Suspect]
     Indication: RHEUMATOID ARTHRITIS
     Dosage: 40 MG, 1 IN 2 WK, SUBCUTANEOUS
     Route: 058
     Dates: start: 20050307
  3. INAMRINONE [Concomitant]
  4. FENOFIBRATE [Concomitant]
  5. FOLIC ACID [Concomitant]
  6. PYRIDOXINE HYDROCHLORIDE [Concomitant]
  7. CALCITONIN-SALMON [Concomitant]
  8. CALCIUM WITH VITAMIN D [Concomitant]
  9. ASPIRIN [Concomitant]
  10. . [Suspect]

REACTIONS (2)
  - NASOPHARYNGITIS [None]
  - URINARY TRACT INFECTION [None]
